FAERS Safety Report 9378927 (Version 1)
Quarter: 2013Q2

REPORT INFORMATION
  Report Type: Spontaneous
  Country: US (occurrence: None)
  Receive Date: 20130626
  Receipt Date: 20130626
  Transmission Date: 20140414
  Serious: No
  Sender: FDA-Public Use
  Company Number: CC 13-0581

PATIENT
  Sex: 0

DRUGS (1)
  1. LIDOCAINE AND PRILOCAINE [Suspect]

REACTIONS (1)
  - Drug ineffective [None]
